FAERS Safety Report 6824418-2 (Version None)
Quarter: 2010Q3

REPORT INFORMATION
  Report Type: 
  Country: None (occurrence: None)
  Receive Date: 20100708
  Receipt Date: 20061020
  Transmission Date: 20110219
  Serious: Yes (Other)
  Sender: FDA-Public Use
  Company Number: US-PFIZER INC-2006129575

PATIENT
  Sex: Male
  Weight: 71.21 kg

DRUGS (15)
  1. CHANTIX [Suspect]
     Indication: SMOKING CESSATION THERAPY
     Route: 048
     Dates: start: 20061004
  2. FISH OIL [Concomitant]
  3. MULTI-VITAMINS [Concomitant]
  4. LEVOTHYROXINE SODIUM [Concomitant]
  5. BENICAR [Concomitant]
  6. FOLIC ACID [Concomitant]
  7. ACIPHEX [Concomitant]
  8. AMITRIPTYLINE [Concomitant]
  9. TOPAMAX [Concomitant]
  10. ZOCOR [Concomitant]
  11. CARDIZEM [Concomitant]
  12. TAMSULOSIN HCL [Concomitant]
  13. DETROL LA [Concomitant]
  14. AMBIEN [Concomitant]
  15. AMIDRINE [Concomitant]

REACTIONS (2)
  - BLOOD PRESSURE INCREASED [None]
  - MIGRAINE WITH AURA [None]
